FAERS Safety Report 19565700 (Version 1)
Quarter: 2021Q3

REPORT INFORMATION
  Report Type: Spontaneous
  Country: US (occurrence: US)
  Receive Date: 20210716
  Receipt Date: 20210716
  Transmission Date: 20211014
  Serious: Yes (Disabling)
  Sender: FDA-Public Use
  Company Number: US-TEVA-2021-US-1933049

PATIENT
  Age: 54 Year
  Sex: Female
  Weight: 60.84 kg

DRUGS (17)
  1. DOCETAXEL SAGENT [Suspect]
     Active Substance: DOCETAXEL
     Indication: INVASIVE DUCTAL BREAST CARCINOMA
     Dosage: 6 CYCLES, EVERY 3 WEEKS
     Route: 065
     Dates: start: 20131014, end: 20140130
  2. VITAMIN B6 [Concomitant]
     Active Substance: PYRIDOXINE HYDROCHLORIDE
     Route: 065
  3. VITAMIN C [Concomitant]
     Active Substance: ASCORBIC ACID
     Route: 065
  4. CHAPARRAL [Concomitant]
     Active Substance: LARREA TRIDENTATA TOP
     Route: 065
  5. COD LIVER OIL [Concomitant]
     Active Substance: COD LIVER OIL
     Route: 065
  6. DOCETAXEL SANOFI?AVENTIS [Suspect]
     Active Substance: DOCETAXEL
     Indication: INVASIVE DUCTAL BREAST CARCINOMA
     Dosage: 6 CYCLES, EVERY 3 WEEKS
     Route: 065
     Dates: start: 20131014, end: 20140130
  7. DOCETAXEL ACCORD HEALTHCARE INC [Suspect]
     Active Substance: DOCETAXEL
     Dosage: 6 CYCLES, EVERY 3 WEEKS
     Route: 065
     Dates: start: 20131014, end: 20140130
  8. TAXOTERE [Suspect]
     Active Substance: DOCETAXEL
     Indication: INVASIVE DUCTAL BREAST CARCINOMA
     Dosage: 6 CYCLES, EVERY 3 WEEKS
     Route: 065
     Dates: start: 20131014, end: 20140130
  9. CYTOXAN [Concomitant]
     Active Substance: CYCLOPHOSPHAMIDE
     Indication: INVASIVE DUCTAL BREAST CARCINOMA
     Dosage: 6 CYCLES, EVERY 3 WEEKS
     Dates: start: 20131014, end: 20140130
  10. EVENING PRIMROSE [Concomitant]
     Route: 065
  11. L?LYSINE [Concomitant]
     Active Substance: LYSINE
     Route: 065
  12. DOCETAXEL SAGENT [Suspect]
     Active Substance: DOCETAXEL
     Dosage: 6 CYCLES, EVERY 3 WEEKS
     Route: 065
     Dates: start: 20131014, end: 20140130
  13. DOCETAXEL WINTHROP US [Suspect]
     Active Substance: DOCETAXEL
     Indication: INVASIVE DUCTAL BREAST CARCINOMA
     Dosage: 6 CYCLES, EVERY 3 WEEKS
     Route: 065
     Dates: start: 20131014, end: 20140130
  14. DOCETAXEL ACCORD HEALTHCARE INC [Suspect]
     Active Substance: DOCETAXEL
     Indication: INVASIVE DUCTAL BREAST CARCINOMA
     Dosage: 6 CYCLES, EVERY 3 WEEKS
     Route: 065
     Dates: start: 20131014, end: 20140130
  15. DOCETAXEL WINTHROP US [Suspect]
     Active Substance: DOCETAXEL
     Dosage: 6 CYCLES, EVERY 3 WEEKS
     Route: 065
     Dates: start: 20131014, end: 20140130
  16. BROMELAIN [Concomitant]
     Active Substance: BROMELAINS
     Route: 065
  17. ZINC. [Concomitant]
     Active Substance: ZINC
     Route: 065

REACTIONS (3)
  - Alopecia areata [Not Recovered/Not Resolved]
  - Hair colour changes [Unknown]
  - Hair texture abnormal [Unknown]

NARRATIVE: CASE EVENT DATE: 2014
